FAERS Safety Report 17579125 (Version 1)
Quarter: 2020Q1

REPORT INFORMATION
  Report Type: Report from Study
  Country: RO (occurrence: RO)
  Receive Date: 20200325
  Receipt Date: 20200325
  Transmission Date: 20200409
  Serious: Yes (Hospitalization)
  Sender: FDA-Public Use
  Company Number: RO-ROCHE-2567835

PATIENT
  Age: 55 Year
  Sex: Female

DRUGS (1)
  1. HERCEPTIN [Suspect]
     Active Substance: TRASTUZUMAB
     Indication: BREAST CANCER
     Route: 058
     Dates: start: 201910

REACTIONS (2)
  - Immunodeficiency [Unknown]
  - Urinary tract obstruction [Recovering/Resolving]

NARRATIVE: CASE EVENT DATE: 20200131
